FAERS Safety Report 4365354-3 (Version None)
Quarter: 2004Q2

REPORT INFORMATION
  Report Type: 
  Country: None (occurrence: None)
  Receive Date: 20040520
  Receipt Date: 20040513
  Transmission Date: 20050107
  Serious: Yes (Life-Threatening)
  Sender: FDA-Public Use
  Company Number: TAP2004Q00588

PATIENT
  Age: 41 Year
  Sex: Female

DRUGS (8)
  1. PREVACID [Suspect]
     Indication: GASTROOESOPHAGEAL REFLUX DISEASE
     Dosage: 30 MG, 1 IN 1 D, PER ORAL
     Route: 048
     Dates: start: 20030101
  2. GLEEVAC (IMATINIB MESILATE) [Suspect]
     Indication: LEUKAEMIA
     Dosage: 200 MG, 1 IN 1 D, PER ORAL
     Route: 048
     Dates: start: 20040301, end: 20040401
  3. GLUCOPHAGE [Concomitant]
  4. ACTOS [Concomitant]
  5. COZAAR [Concomitant]
  6. CELEBREX [Concomitant]
  7. ZETIA [Concomitant]
  8. HYDROCHLOROTHIAZIDE [Concomitant]

REACTIONS (5)
  - ABDOMINAL PAIN UPPER [None]
  - CONFUSIONAL STATE [None]
  - DIARRHOEA [None]
  - LEUKAEMIA [None]
  - NAUSEA [None]
